FAERS Safety Report 25344793 (Version 1)
Quarter: 2025Q2

REPORT INFORMATION
  Report Type: Spontaneous
  Country: BE (occurrence: BE)
  Receive Date: 20250522
  Receipt Date: 20250522
  Transmission Date: 20250717
  Serious: Yes (Life-Threatening, Hospitalization)
  Sender: GLAXOSMITHKLINE
  Company Number: BE-GSK-BE2025GSK062393

PATIENT

DRUGS (8)
  1. MEPOLIZUMAB [Suspect]
     Active Substance: MEPOLIZUMAB
     Indication: Eosinophilic granulomatosis with polyangiitis
     Dosage: 100 MG, Q4W (EVERY 4 WEEKS)
     Route: 058
  2. MEPOLIZUMAB [Suspect]
     Active Substance: MEPOLIZUMAB
     Dosage: 300 MG, Q4W (EVERY 4 WEEKS)
     Route: 058
  3. AZATHIOPRINE [Suspect]
     Active Substance: AZATHIOPRINE
     Indication: Eosinophilic granulomatosis with polyangiitis
     Dosage: 125 MG, 1D
  4. RITUXIMAB [Suspect]
     Active Substance: RITUXIMAB
     Indication: Pulmonary alveolar haemorrhage
     Route: 042
  5. RITUXIMAB [Suspect]
     Active Substance: RITUXIMAB
  6. CYCLOPHOSPHAMIDE [Concomitant]
     Active Substance: CYCLOPHOSPHAMIDE
     Indication: Mononeuropathy multiplex
     Route: 042
  7. CYCLOPHOSPHAMIDE [Concomitant]
     Active Substance: CYCLOPHOSPHAMIDE
     Indication: Eosinophilic granulomatosis with polyangiitis
     Dosage: 750 MG/M2, MO
  8. MYCOPHENOLIC ACID [Concomitant]
     Active Substance: MYCOPHENOLIC ACID
     Indication: Eosinophilic granulomatosis with polyangiitis
     Dosage: 1000 MG, BID

REACTIONS (3)
  - Drug ineffective [Unknown]
  - Drug intolerance [Unknown]
  - Product use issue [Unknown]
